FAERS Safety Report 11216365 (Version 1)
Quarter: 2015Q2

REPORT INFORMATION
  Report Type: Spontaneous
  Country: CH (occurrence: CH)
  Receive Date: 20150624
  Receipt Date: 20150624
  Transmission Date: 20150821
  Serious: Yes (Hospitalization, Other)
  Sender: FDA-Public Use
  Company Number: CH-ASTRAZENECA-2015SE59838

PATIENT
  Age: 642 Month
  Sex: Male

DRUGS (3)
  1. SEROQUEL [Suspect]
     Active Substance: QUETIAPINE FUMARATE
     Indication: BIPOLAR DISORDER
     Route: 048
     Dates: start: 2012, end: 201503
  2. DEPAKENE [Suspect]
     Active Substance: VALPROIC ACID
     Indication: BIPOLAR DISORDER
     Route: 048
  3. SEROQUEL [Suspect]
     Active Substance: QUETIAPINE FUMARATE
     Indication: BIPOLAR DISORDER
     Route: 048
     Dates: end: 2012

REACTIONS (14)
  - Sinus tachycardia [Unknown]
  - Pyrexia [Unknown]
  - Heart valve incompetence [Unknown]
  - Aortic valve sclerosis [Unknown]
  - Cardiac failure [Recovered/Resolved]
  - Intracardiac thrombus [Unknown]
  - Pulmonary hypertension [Unknown]
  - Chest pain [Recovered/Resolved]
  - Dilatation ventricular [Unknown]
  - Dilatation atrial [Unknown]
  - Congestive cardiomyopathy [Unknown]
  - Electrocardiogram QRS complex prolonged [Unknown]
  - Hypotension [Recovered/Resolved]
  - Dyspnoea [Recovered/Resolved]

NARRATIVE: CASE EVENT DATE: 201501
